FAERS Safety Report 4598000-4 (Version None)
Quarter: 2005Q1

REPORT INFORMATION
  Report Type: 
  Country: None (occurrence: None)
  Receive Date: 20050209
  Receipt Date: 20040305
  Transmission Date: 20050727
  Serious: No
  Sender: FDA-Public Use
  Company Number: 361055

PATIENT
  Age: 35 Year
  Sex: Male

DRUGS (1)
  1. TORADOL [Suspect]
     Indication: PAIN
     Dosage: 30 MG 1 PER 6 HOUR INTRAVENOUS
     Route: 042

REACTIONS (1)
  - GASTRIC ULCER [None]
